FAERS Safety Report 21909258 (Version 2)
Quarter: 2023Q1

REPORT INFORMATION
  Report Type: Spontaneous
  Country: US (occurrence: US)
  Receive Date: 20230125
  Receipt Date: 20230220
  Transmission Date: 20230417
  Serious: Yes (Other)
  Sender: FDA-Public Use
  Company Number: US-TEVA-2023-US-2847728

PATIENT
  Age: 44 Year
  Sex: Male

DRUGS (1)
  1. FINASTERIDE [Suspect]
     Active Substance: FINASTERIDE
     Indication: Product used for unknown indication
     Route: 065
     Dates: end: 2014

REACTIONS (4)
  - Sexual dysfunction [Unknown]
  - Nervous system disorder [Unknown]
  - Anxiety [Unknown]
  - Asthenia [Unknown]
